FAERS Safety Report 23001960 (Version 2)
Quarter: 2025Q2

REPORT INFORMATION
  Report Type: Spontaneous
  Country: AU (occurrence: AU)
  Receive Date: 20230928
  Receipt Date: 20250624
  Transmission Date: 20250717
  Serious: Yes (Other)
  Sender: ORGANON
  Company Number: AU-ORGANON-O2309AUS003101

PATIENT
  Age: 9 Year
  Sex: Male

DRUGS (1)
  1. SINGULAIR [Suspect]
     Active Substance: MONTELUKAST SODIUM

REACTIONS (16)
  - Suicidal ideation [Unknown]
  - Hallucination, auditory [Unknown]
  - Intentional self-injury [Unknown]
  - Aggression [Unknown]
  - Anger [Unknown]
  - Anxiety [Unknown]
  - Attention deficit hyperactivity disorder [Unknown]
  - Crying [Unknown]
  - Depression [Unknown]
  - Eating disorder [Unknown]
  - Irritability [Unknown]
  - Memory impairment [Unknown]
  - Nightmare [Unknown]
  - Obsessive-compulsive disorder [Unknown]
  - Self esteem decreased [Unknown]
  - Social anxiety disorder [Unknown]
